FAERS Safety Report 8183363-3 (Version None)
Quarter: 2012Q1

REPORT INFORMATION
  Report Type: 
  Country: None (occurrence: None)
  Receive Date: 20120305
  Receipt Date: 20120223
  Transmission Date: 20120608
  Serious: Yes (Death, Hospitalization, Other)
  Sender: FDA-Public Use
  Company Number: JP-AMGEN-JPNCT2011052881

PATIENT
  Age: 75 Year
  Sex: Male
  Weight: 42 kg

DRUGS (27)
  1. LEVOLEUCOVORIN CALCIUM [Concomitant]
     Indication: COLORECTAL CANCER
     Route: 041
     Dates: start: 20101104, end: 20110906
  2. LEVOLEUCOVORIN CALCIUM [Concomitant]
     Route: 041
     Dates: start: 20110907
  3. KYTRIL [Concomitant]
     Dosage: UNK
     Route: 042
  4. IRINOTECAN HCL [Concomitant]
     Indication: COLORECTAL CANCER
     Route: 041
     Dates: start: 20110907
  5. PANITUMUMAB [Suspect]
     Dosage: 6 MG/KG, Q2WK
     Route: 041
     Dates: start: 20110518, end: 20110518
  6. LEVOLEUCOVORIN CALCIUM [Concomitant]
     Route: 041
     Dates: start: 20101104, end: 20110824
  7. FLUOROURACIL [Concomitant]
     Indication: COLORECTAL CANCER
     Route: 040
     Dates: start: 20101104, end: 20110906
  8. KYTRIL [Concomitant]
     Route: 042
     Dates: start: 20101104, end: 20110921
  9. DECADRON [Concomitant]
     Route: 042
     Dates: start: 20101104, end: 20110921
  10. PANITUMUMAB [Suspect]
     Indication: COLORECTAL CANCER
     Dosage: 6 MG/KG, Q2WK
     Route: 041
     Dates: start: 20101104, end: 20110127
  11. PANITUMUMAB [Suspect]
     Dosage: 6 MG/KG, Q2WK
     Route: 041
     Dates: start: 20110420, end: 20110420
  12. PANITUMUMAB [Suspect]
     Dosage: 6 MG/KG, Q2WK
     Route: 041
     Dates: start: 20110615, end: 20110615
  13. OXALIPLATIN [Concomitant]
     Route: 041
     Dates: start: 20101104, end: 20110824
  14. FLUOROURACIL [Concomitant]
     Route: 041
     Dates: start: 20110907, end: 20111005
  15. IRINOTECAN HCL [Concomitant]
     Route: 041
     Dates: start: 20110907, end: 20111005
  16. DECADRON [Concomitant]
     Dosage: UNK
     Route: 042
  17. PANITUMUMAB [Suspect]
     Dosage: 6 MG/KG, Q2WK
     Route: 041
     Dates: start: 20110824, end: 20110921
  18. OXALIPLATIN [Concomitant]
     Indication: COLORECTAL CANCER
     Route: 041
     Dates: start: 20101104, end: 20110906
  19. LEVOLEUCOVORIN CALCIUM [Concomitant]
     Route: 041
     Dates: start: 20110907, end: 20111005
  20. PANITUMUMAB [Suspect]
     Dosage: 6 MG/KG, Q2WK
     Route: 041
     Dates: start: 20110224, end: 20110224
  21. FLUOROURACIL [Concomitant]
     Route: 041
     Dates: start: 20110907
  22. FLUOROURACIL [Concomitant]
     Route: 040
     Dates: start: 20101104, end: 20110824
  23. FLUOROURACIL [Concomitant]
     Route: 041
     Dates: start: 20101104, end: 20110824
  24. FLUOROURACIL [Concomitant]
     Route: 040
     Dates: start: 20110907, end: 20111005
  25. PANITUMUMAB [Suspect]
     Dosage: 6 MG/KG, Q2WK
     Route: 041
     Dates: start: 20110323, end: 20110323
  26. FLUOROURACIL [Concomitant]
     Route: 041
     Dates: start: 20101104, end: 20110906
  27. FLUOROURACIL [Concomitant]
     Route: 040
     Dates: start: 20110907

REACTIONS (4)
  - INTERSTITIAL LUNG DISEASE [None]
  - COLORECTAL CANCER [None]
  - STOMATITIS [None]
  - RASH [None]
